FAERS Safety Report 11321371 (Version 1)
Quarter: 2015Q3

REPORT INFORMATION
  Report Type: Spontaneous
  Country: US (occurrence: US)
  Receive Date: 20150729
  Receipt Date: 20150729
  Transmission Date: 20151125
  Serious: No
  Sender: FDA-Public Use
  Company Number: US-ENDO PHARMACEUTICALS INC.-201408007

PATIENT
  Age: 66 Year
  Sex: Male
  Weight: 95.34 kg

DRUGS (7)
  1. MULTIVITAMIN [Concomitant]
     Active Substance: VITAMINS
  2. VITAMIN D3 [Concomitant]
     Active Substance: CHOLECALCIFEROL
  3. TESTOPEL [Suspect]
     Active Substance: TESTOSTERONE
     Indication: BLOOD TESTOSTERONE DECREASED
     Dosage: 10 PELLETS
     Route: 058
     Dates: start: 20140801
  4. ASPIRIN. [Concomitant]
     Active Substance: ASPIRIN
  5. CRESTOR [Concomitant]
     Active Substance: ROSUVASTATIN CALCIUM
  6. LEVITRA [Concomitant]
     Active Substance: VARDENAFIL HYDROCHLORIDE TRIHYDRATE
  7. FISH OIL [Concomitant]
     Active Substance: FISH OIL

REACTIONS (2)
  - Incorrect product storage [Unknown]
  - Overdose [Unknown]

NARRATIVE: CASE EVENT DATE: 20140801
